FAERS Safety Report 9966838 (Version 2)
Quarter: 2014Q1

REPORT INFORMATION
  Report Type: Report from Study
  Country: US (occurrence: US)
  Receive Date: 20140305
  Receipt Date: 20140305
  Transmission Date: 20141002
  Serious: Yes (Other)
  Sender: FDA-Public Use
  Company Number: US-ABBVIE-13P-163-1096316-00

PATIENT
  Age: 44 Year
  Sex: Female
  Weight: 76.27 kg

DRUGS (4)
  1. HUMIRA [Suspect]
     Indication: PSORIASIS
     Dates: start: 201205, end: 20130501
  2. SYNTHROID [Concomitant]
     Indication: HYPOTHYROIDISM
  3. CITALOPRAM [Concomitant]
     Indication: ANXIETY
  4. CELEXA [Concomitant]
     Route: 048

REACTIONS (7)
  - Lupus-like syndrome [Recovered/Resolved]
  - Skin lesion [Unknown]
  - Joint swelling [Recovering/Resolving]
  - Hepatic enzyme increased [Recovered/Resolved]
  - Arthralgia [Unknown]
  - Psoriasis [Unknown]
  - Arthralgia [Recovering/Resolving]
